FAERS Safety Report 9980030 (Version 1)
Quarter: 2014Q1

REPORT INFORMATION
  Report Type: Report from Study
  Country: US (occurrence: US)
  Receive Date: 20140307
  Receipt Date: 20140307
  Transmission Date: 20141002
  Serious: No
  Sender: FDA-Public Use
  Company Number: US-ABBVIE-13P-163-1170532-00

PATIENT
  Age: 60 Year
  Sex: Male

DRUGS (16)
  1. HUMIRA [Suspect]
     Indication: PSORIATIC ARTHROPATHY
     Dates: start: 20131006
  2. PRAVASTATIN [Concomitant]
     Indication: BLOOD CHOLESTEROL INCREASED
  3. SERTRALINE [Concomitant]
     Indication: ANXIETY DISORDER
     Dosage: 1/2-PILL NIGHTLY
  4. METOPROLOL [Concomitant]
     Indication: HYPERTENSION
  5. HYDROCHLOROTHIAZIDE [Concomitant]
     Indication: HYPERTENSION
  6. FOLIC ACID [Concomitant]
     Indication: PRODUCT USED FOR UNKNOWN INDICATION
  7. METHOTREXATE [Concomitant]
     Indication: PSORIATIC ARTHROPATHY
     Dosage: TAKES ON SUNDAY AT 3 AM AND 3 PM
  8. MELOXICAM [Concomitant]
     Indication: PAIN
  9. GABAPENTIN [Concomitant]
     Indication: INSOMNIA
     Dosage: 2 AT NIGHT
  10. GABAPENTIN [Concomitant]
     Indication: RESTLESS LEGS SYNDROME
  11. HYDROCORTISONE BUTYRATE [Concomitant]
     Indication: PRODUCT USED FOR UNKNOWN INDICATION
     Dosage: 2 TIMES DAILY AS NEEDED
  12. CLINDAMYCIN PHOSPHATE [Concomitant]
     Indication: RASH
  13. AMOXICILLIN [Concomitant]
     Indication: PRODUCT USED FOR UNKNOWN INDICATION
     Dosage: TAKES 4 PRIOR TO DENTAL APPOINTMENTS
  14. VITAMIN D3 [Concomitant]
     Indication: VITAMIN D DECREASED
  15. ESTER-C [Concomitant]
     Indication: INFECTION PROPHYLAXIS
     Dosage: 500 MG DAILY
  16. METAMUCIL [Concomitant]
     Indication: PRODUCT USED FOR UNKNOWN INDICATION
     Dosage: DAILY

REACTIONS (5)
  - Hypoaesthesia [Not Recovered/Not Resolved]
  - Skin burning sensation [Not Recovered/Not Resolved]
  - Procedural pain [Not Recovered/Not Resolved]
  - Hyperhidrosis [Unknown]
  - Rash [Not Recovered/Not Resolved]
